FAERS Safety Report 20686319 (Version 1)
Quarter: 2022Q2

REPORT INFORMATION
  Report Type: Spontaneous
  Country: US (occurrence: US)
  Receive Date: 20220407
  Receipt Date: 20220407
  Transmission Date: 20220721
  Serious: No
  Sender: FDA-Public Use
  Company Number: US-JAZZ-2022-US-007908

PATIENT
  Sex: Male

DRUGS (21)
  1. SUNOSI [Suspect]
     Active Substance: SOLRIAMFETOL
     Indication: Product used for unknown indication
     Route: 048
  2. PROCARDIA [Concomitant]
     Active Substance: NIFEDIPINE
     Dosage: 0000
     Dates: start: 20211122
  3. XANAX [Concomitant]
     Active Substance: ALPRAZOLAM
     Dosage: 0000
     Dates: start: 20211214
  4. ATORVASTATIN CALCIUM [Concomitant]
     Active Substance: ATORVASTATIN CALCIUM
     Dosage: 0000
     Dates: start: 20211015
  5. LISINOPRIL [Concomitant]
     Active Substance: LISINOPRIL
     Dosage: 0000
     Dates: start: 20211122
  6. NITROGLYCERIN [Concomitant]
     Active Substance: NITROGLYCERIN
     Dosage: 0000
     Dates: start: 20211110
  7. PANTOPRAZOLE SODIUM [Concomitant]
     Active Substance: PANTOPRAZOLE SODIUM
     Dosage: 0000
     Dates: start: 20211214
  8. MORNIFLUMATE [Concomitant]
     Active Substance: MORNIFLUMATE
     Dosage: 0000
     Dates: start: 20210105
  9. ZYLOPRIM [Concomitant]
     Active Substance: ALLOPURINOL
     Dosage: UNK
  10. LIPITOR [Concomitant]
     Active Substance: ATORVASTATIN CALCIUM
     Dosage: UNK
  11. TUMS [Concomitant]
     Active Substance: CALCIUM CARBONATE
     Dosage: UNK
  12. PEPCID [Concomitant]
     Active Substance: FAMOTIDINE
     Dosage: UNK
  13. IMDUR [Concomitant]
     Active Substance: ISOSORBIDE MONONITRATE
     Dosage: UNK
  14. PRINIVIL [Concomitant]
     Active Substance: LISINOPRIL
     Dosage: UNK
  15. MOBIC [Concomitant]
     Active Substance: MELOXICAM
     Dosage: UNK
  16. CRESTOR [Concomitant]
     Active Substance: ROSUVASTATIN CALCIUM
     Dosage: UNK
  17. MORNIFLUMATE [Concomitant]
     Active Substance: MORNIFLUMATE
     Dosage: UNK
  18. CEFIXIME [Concomitant]
     Active Substance: CEFIXIME
     Dosage: UNK
  19. MYCOSTATIN [Concomitant]
     Active Substance: NYSTATIN
     Dosage: UNK
  20. BELSOMRA [Concomitant]
     Active Substance: SUVOREXANT
     Dosage: UNK
  21. CIALIS [Concomitant]
     Active Substance: TADALAFIL
     Dosage: UNK

REACTIONS (2)
  - Fatigue [Unknown]
  - Sinusitis [Unknown]
